FAERS Safety Report 13080102 (Version 1)
Quarter: 2017Q1

REPORT INFORMATION
  Report Type: Spontaneous
  Country: DK (occurrence: DK)
  Receive Date: 20170103
  Receipt Date: 20170103
  Transmission Date: 20170428
  Serious: Yes (Death, Life-Threatening)
  Sender: FDA-Public Use
  Company Number: DK-FRESENIUS KABI-FK201610219

PATIENT
  Age: 69 Year
  Sex: Male
  Weight: 70 kg

DRUGS (2)
  1. CARBOPLATIN INJECTION 10MG/ML [Suspect]
     Active Substance: CARBOPLATIN
     Indication: MESOTHELIOMA MALIGNANT
     Route: 042
     Dates: start: 201611, end: 20161209
  2. PEMETREXED LILLY [Suspect]
     Active Substance: PEMETREXED
     Indication: MESOTHELIOMA MALIGNANT
     Route: 042
     Dates: start: 201611, end: 20161209

REACTIONS (6)
  - Blood pressure decreased [Unknown]
  - Dialysis [None]
  - Acute hepatic failure [Fatal]
  - C-reactive protein increased [Unknown]
  - Acute kidney injury [Fatal]
  - Fluid overload [Unknown]

NARRATIVE: CASE EVENT DATE: 201612
